FAERS Safety Report 12239074 (Version 1)
Quarter: 2016Q2

REPORT INFORMATION
  Report Type: Spontaneous
  Country: US (occurrence: US)
  Receive Date: 20160405
  Receipt Date: 20160405
  Transmission Date: 20160815
  Serious: No
  Sender: FDA-Public Use
  Company Number: US-009507513-1603USA004142

PATIENT
  Age: 65 Year
  Sex: Female

DRUGS (1)
  1. ZETIA [Suspect]
     Active Substance: EZETIMIBE
     Indication: BLOOD CHOLESTEROL
     Dosage: ONE 10 MG TABLET DAILY
     Route: 048

REACTIONS (2)
  - Drug dose omission [Unknown]
  - Adverse event [Unknown]
